FAERS Safety Report 7324522-9 (Version None)
Quarter: 2011Q1

REPORT INFORMATION
  Report Type: 
  Country: None (occurrence: None)
  Receive Date: 20110203
  Receipt Date: 20100310
  Transmission Date: 20110831
  Serious: Yes (Hospitalization)
  Sender: FDA-Public Use
  Company Number: 8017340

PATIENT
  Age: 27 Year
  Sex: Female

DRUGS (6)
  1. KEPPRA [Suspect]
     Dosage: (ORAL), (3000 MG, DOSE FREQ.: DAILY), (2500 MG, DOSE FREQ.: DAILY)
     Route: 048
     Dates: start: 20050605
  2. KEPPRA [Suspect]
     Dosage: (ORAL), (3000 MG, DOSE FREQ.: DAILY), (2500 MG, DOSE FREQ.: DAILY)
     Route: 048
     Dates: end: 20050531
  3. KEPPRA [Suspect]
     Dosage: (ORAL), (3000 MG, DOSE FREQ.: DAILY), (2500 MG, DOSE FREQ.: DAILY)
     Route: 048
     Dates: start: 20050601, end: 20050605
  4. METHYLDOPA [Concomitant]
  5. FOLIC ACID [Concomitant]
  6. PRENATAL VITAMINS /01549301/ [Concomitant]

REACTIONS (2)
  - ABDOMINAL PAIN UPPER [None]
  - PREGNANCY [None]
